FAERS Safety Report 23525405 (Version 1)
Quarter: 2024Q1

REPORT INFORMATION
  Report Type: Spontaneous
  Country: US (occurrence: US)
  Receive Date: 20240215
  Receipt Date: 20240215
  Transmission Date: 20240409
  Serious: No
  Sender: FDA-Public Use
  Company Number: US-HIKMA PHARMACEUTICALS USA INC.-US-H14001-23-63240

PATIENT
  Sex: Female

DRUGS (1)
  1. FLUTICASONE PROPIONATE [Suspect]
     Active Substance: FLUTICASONE PROPIONATE
     Indication: Hypersensitivity
     Dosage: 2 DOSAGE FORM IN EACH NOSTRIL, QD
     Route: 065

REACTIONS (5)
  - Epistaxis [Unknown]
  - Off label use [Unknown]
  - Drug ineffective [Unknown]
  - General physical health deterioration [Unknown]
  - Mucosal disorder [Unknown]
